FAERS Safety Report 6232467-0 (Version None)
Quarter: 2009Q2

REPORT INFORMATION
  Report Type: 
  Country: None (occurrence: None)
  Receive Date: 20090617
  Receipt Date: 20090610
  Transmission Date: 20091009
  Serious: Yes (Death)
  Sender: FDA-Public Use
  Company Number: JP-ROCHE-637973

PATIENT
  Age: 47 Year
  Sex: Male

DRUGS (6)
  1. CELLCEPT [Suspect]
     Indication: PROPHYLAXIS AGAINST TRANSPLANT REJECTION
     Route: 048
  2. ALPROSTADIL [Concomitant]
     Route: 013
  3. METHYLPREDNISOLONE SODIUM SUCCINATE [Concomitant]
     Route: 013
  4. FOY [Concomitant]
     Route: 041
  5. CYCLOPHOSPHAMIDE [Concomitant]
     Dosage: ROUTE: INJECTABLE (NOT OTHERWISE SPECIFIED)
     Route: 042
  6. TACROLIMUS [Concomitant]
     Dosage: FORM: ORAL FORMULATION (NOT OTHERWISE SPECIFIED)
     Route: 048

REACTIONS (1)
  - HEPATIC NEOPLASM MALIGNANT RECURRENT [None]
